FAERS Safety Report 7586507-7 (Version None)
Quarter: 2011Q3

REPORT INFORMATION
  Report Type: 
  Country: None (occurrence: None)
  Receive Date: 20110701
  Receipt Date: 20110620
  Transmission Date: 20111222
  Serious: No
  Sender: FDA-Public Use
  Company Number: PE-ROCHE-784051

PATIENT
  Sex: Female
  Weight: 56 kg

DRUGS (1)
  1. ACCUTANE [Suspect]
     Indication: ACNE
     Dosage: FREQUENCY:  DAILY
     Route: 048
     Dates: start: 20101201, end: 20110614

REACTIONS (2)
  - PREGNANCY [None]
  - NO ADVERSE EVENT [None]
